FAERS Safety Report 8159558-1 (Version None)
Quarter: 2012Q1

REPORT INFORMATION
  Report Type: 
  Country: None (occurrence: None)
  Receive Date: 20120223
  Receipt Date: 20120214
  Transmission Date: 20120608
  Serious: Yes (Other)
  Sender: FDA-Public Use
  Company Number: BR-ROCHE-1040256

PATIENT
  Age: 66 Year
  Sex: Female
  Weight: 54 kg

DRUGS (9)
  1. ENALAPRIL MALEATE [Concomitant]
     Indication: BLOOD PRESSURE ABNORMAL
  2. RIBAVIRIN [Concomitant]
     Indication: HEPATITIS C
  3. PEGASYS [Suspect]
     Indication: HEPATITIS C
     Dates: start: 20000101
  4. CRANBERRY [Concomitant]
     Indication: URINARY TRACT INFECTION
  5. PEGASYS [Suspect]
     Dates: start: 20100526
  6. DEXTRAN 70 [Suspect]
     Indication: PRODUCT USED FOR UNKNOWN INDICATION
  7. OMEPRAZOLE [Concomitant]
  8. AMLODIPINE BESYLATE [Concomitant]
     Indication: BLOOD PRESSURE ABNORMAL
  9. LEVOTHYROXINE SODIUM [Concomitant]
     Indication: BLOOD THYROID STIMULATING HORMONE ABNORMAL

REACTIONS (8)
  - VISION BLURRED [None]
  - WOUND [None]
  - HYPERTENSION [None]
  - WEIGHT DECREASED [None]
  - DIABETES MELLITUS [None]
  - CRYOGLOBULINS PRESENT [None]
  - VISUAL IMPAIRMENT [None]
  - TUMOUR MARKER INCREASED [None]
